FAERS Safety Report 14110588 (Version 1)
Quarter: 2017Q4

REPORT INFORMATION
  Report Type: Spontaneous
  Country: US (occurrence: None)
  Receive Date: 20171019
  Receipt Date: 20171019
  Transmission Date: 20180321
  Serious: Yes (Hospitalization)
  Sender: FDA-Public Use
  Company Number: None

PATIENT
  Age: 23 Year
  Sex: Male

DRUGS (8)
  1. PREVACID [Concomitant]
     Active Substance: LANSOPRAZOLE
  2. BUDESONIDE. [Concomitant]
     Active Substance: BUDESONIDE
  3. ACID REDUCER [Concomitant]
  4. KEPPRA [Concomitant]
     Active Substance: LEVETIRACETAM
  5. XOPENEX [Concomitant]
     Active Substance: LEVALBUTEROL HYDROCHLORIDE
  6. PULMOZYME [Suspect]
     Active Substance: DORNASE ALFA
     Indication: CYSTIC FIBROSIS
     Route: 030
     Dates: start: 20170824
  7. ZINC. [Concomitant]
     Active Substance: ZINC
  8. SYNTHROID [Concomitant]
     Active Substance: LEVOTHYROXINE SODIUM

REACTIONS (3)
  - Staphylococcal infection [None]
  - Drug dose omission [None]
  - Pneumonia [None]

NARRATIVE: CASE EVENT DATE: 20171007
